FAERS Safety Report 5603164-7 (Version None)
Quarter: 2008Q1

REPORT INFORMATION
  Report Type: 
  Country: None (occurrence: None)
  Receive Date: 20080125
  Receipt Date: 20080115
  Transmission Date: 20080703
  Serious: Yes (Other)
  Sender: FDA-Public Use
  Company Number: US-PFIZER INC-2008005376

PATIENT
  Sex: Female
  Weight: 67.272 kg

DRUGS (4)
  1. CHANTIX [Interacting]
     Indication: SMOKING CESSATION THERAPY
  2. OXYCONTIN [Interacting]
     Indication: PAIN
  3. SANCTURA [Suspect]
     Indication: PAIN
  4. SOMA [Suspect]
     Indication: PAIN

REACTIONS (3)
  - DRUG INTERACTION [None]
  - INADEQUATE ANALGESIA [None]
  - PAIN [None]
